FAERS Safety Report 9143965 (Version 1)
Quarter: 2013Q1

REPORT INFORMATION
  Report Type: Spontaneous
  Country: US (occurrence: US)
  Receive Date: 20130306
  Receipt Date: 20130306
  Transmission Date: 20140127
  Serious: No
  Sender: FDA-Public Use
  Company Number: US-ASTRAZENECA-2013SE11266

PATIENT
  Age: 62 Year
  Sex: Male
  Weight: 74.8 kg

DRUGS (7)
  1. NEXIUM [Suspect]
     Indication: GASTROOESOPHAGEAL REFLUX DISEASE
     Route: 048
     Dates: start: 2009
  2. NEXIUM [Suspect]
     Indication: GASTROOESOPHAGEAL REFLUX DISEASE
     Route: 048
     Dates: start: 201206
  3. LISINOPRIL [Suspect]
     Indication: HYPERTENSION
     Route: 048
     Dates: start: 2011
  4. ACTOS [Concomitant]
     Indication: DIABETES MELLITUS
     Route: 048
  5. GLUCOPHAGE [Concomitant]
     Indication: DIABETES MELLITUS
     Route: 048
  6. DIABINESE [Concomitant]
     Indication: DIABETES MELLITUS
     Route: 048
  7. ADVAIR [Concomitant]
     Indication: ASTHMA
     Dosage: DAILY
     Route: 055

REACTIONS (4)
  - Dyspnoea [Unknown]
  - Hypertension [Unknown]
  - Asthma [Not Recovered/Not Resolved]
  - Ulcer [Not Recovered/Not Resolved]
